FAERS Safety Report 5512572-4 (Version None)
Quarter: 2007Q4

REPORT INFORMATION
  Report Type: 
  Country: None (occurrence: None)
  Receive Date: 20071107
  Receipt Date: 20071025
  Transmission Date: 20080405
  Serious: Yes (Hospitalization)
  Sender: FDA-Public Use
  Company Number: RENA-12158

PATIENT
  Age: 60 Year
  Sex: Male

DRUGS (5)
  1. RENAGEL [Suspect]
     Indication: HYPERPHOSPHATAEMIA
     Dosage: 0.8 G TID PO
     Route: 048
     Dates: start: 20070103, end: 20070315
  2. XIAN ZHU LI YE [Concomitant]
  3. RECOMBINANT HUMAN ERYTHROPOIETIN (RHUEPO) [Concomitant]
  4. FOSINOPRIL SODIUM [Concomitant]
  5. ALLOPURINOL [Concomitant]

REACTIONS (4)
  - BRONCHIECTASIS [None]
  - BRONCHITIS [None]
  - NASOPHARYNGITIS [None]
  - UPPER RESPIRATORY TRACT INFECTION [None]
